FAERS Safety Report 4938398-8 (Version None)
Quarter: 2006Q1

REPORT INFORMATION
  Report Type: 
  Country: None (occurrence: None)
  Receive Date: 20060302
  Receipt Date: 20060217
  Transmission Date: 20060701
  Serious: Yes (Hospitalization)
  Sender: FDA-Public Use
  Company Number: THYR-10292

PATIENT
  Age: 57 Year
  Sex: Male

DRUGS (1)
  1. THYROGEN [Suspect]

REACTIONS (3)
  - BACK PAIN [None]
  - PARAPARESIS [None]
  - SPINAL CORD NEOPLASM [None]
